APPROVED DRUG PRODUCT: IBUPROFEN AND DIPHENHYDRAMINE CITRATE
Active Ingredient: DIPHENHYDRAMINE CITRATE; IBUPROFEN
Strength: 38MG;200MG
Dosage Form/Route: TABLET;ORAL
Application: A211404 | Product #001
Applicant: PLD ACQUISITIONS LLC
Approved: Apr 11, 2024 | RLD: No | RS: No | Type: OTC